FAERS Safety Report 11247275 (Version 2)
Quarter: 2015Q3

REPORT INFORMATION
  Report Type: Spontaneous
  Country: US (occurrence: US)
  Receive Date: 20150708
  Receipt Date: 20150710
  Transmission Date: 20151125
  Serious: Yes (Other)
  Sender: FDA-Public Use
  Company Number: US-PFIZER INC-2015223612

PATIENT
  Age: 72 Year
  Sex: Female
  Weight: 107.94 kg

DRUGS (8)
  1. MS CONTIN [Concomitant]
     Active Substance: MORPHINE SULFATE
     Indication: COMPLEX REGIONAL PAIN SYNDROME
     Dosage: 100 MG, 2X/DAY
  2. MS CONTIN [Concomitant]
     Active Substance: MORPHINE SULFATE
     Dosage: 70 MG, UNK
  3. MS CONTIN [Concomitant]
     Active Substance: MORPHINE SULFATE
     Dosage: 30 MG, 2X/DAY (ONE EVERY 12 HOURS)
  4. ATENOLOL. [Concomitant]
     Active Substance: ATENOLOL
     Indication: ARRHYTHMIA
  5. SOMA [Concomitant]
     Active Substance: CARISOPRODOL
     Dosage: 250 MG, EVERY 6 HOURS
  6. LYRICA [Suspect]
     Active Substance: PREGABALIN
     Indication: COMPLEX REGIONAL PAIN SYNDROME
     Dosage: 50 MG OR 100 MG, BID
     Route: 048
     Dates: start: 2014, end: 2014
  7. SOMA [Concomitant]
     Active Substance: CARISOPRODOL
     Indication: COMPLEX REGIONAL PAIN SYNDROME
     Dosage: 350 MG, EVERY EIGHT HOURS
  8. ATENOLOL. [Concomitant]
     Active Substance: ATENOLOL
     Indication: HEART RATE IRREGULAR
     Dosage: 25 MG, 1X/DAY

REACTIONS (12)
  - Fall [Unknown]
  - Pain [Unknown]
  - Suicidal ideation [Unknown]
  - Hallucination [Unknown]
  - Product use issue [Unknown]
  - Facial bones fracture [Unknown]
  - Insomnia [Unknown]
  - Hallucination, auditory [Recovered/Resolved]
  - Aortic valve incompetence [Unknown]
  - Abnormal dreams [Unknown]
  - Anxiety [Unknown]
  - Disease progression [Unknown]

NARRATIVE: CASE EVENT DATE: 2014
